FAERS Safety Report 4618540-9 (Version None)
Quarter: 2005Q1

REPORT INFORMATION
  Report Type: 
  Country: None (occurrence: None)
  Receive Date: 20050323
  Receipt Date: 20050314
  Transmission Date: 20050727
  Serious: Yes (Death, Hospitalization, Other)
  Sender: FDA-Public Use
  Company Number: 2005039199

PATIENT
  Age: 47 Year
  Sex: Male

DRUGS (1)
  1. LIPITOR [Suspect]
     Indication: HYPERCHOLESTEROLAEMIA
     Dosage: ORAL
     Route: 048
     Dates: start: 20010101, end: 20010501

REACTIONS (26)
  - ABNORMAL SENSATION IN EYE [None]
  - ACUTE MYOCARDIAL INFARCTION [None]
  - ALANINE AMINOTRANSFERASE INCREASED [None]
  - ALCOHOL USE [None]
  - AMYOTROPHIC LATERAL SCLEROSIS [None]
  - ANGINA UNSTABLE [None]
  - ASPARTATE AMINOTRANSFERASE INCREASED [None]
  - ASTHENIA [None]
  - BLOOD LACTATE DEHYDROGENASE INCREASED [None]
  - CHRONIC OBSTRUCTIVE PULMONARY DISEASE [None]
  - CONDITION AGGRAVATED [None]
  - CORONARY ARTERY DISEASE [None]
  - DENERVATION ATROPHY [None]
  - DIFFICULTY IN WALKING [None]
  - DISEASE RECURRENCE [None]
  - DIZZINESS [None]
  - LIVER DISORDER [None]
  - MOTOR DYSFUNCTION [None]
  - MUSCLE ATROPHY [None]
  - MUSCULOSKELETAL STIFFNESS [None]
  - MYOSITIS [None]
  - PALPITATIONS [None]
  - PARAESTHESIA [None]
  - POLYNEUROPATHY [None]
  - QUADRIPLEGIA [None]
  - RESPIRATORY FAILURE [None]
